FAERS Safety Report 7345017-2 (Version None)
Quarter: 2011Q1

REPORT INFORMATION
  Report Type: 
  Country: None (occurrence: None)
  Receive Date: 20110302
  Receipt Date: 20110218
  Transmission Date: 20110831
  Serious: Yes (Life-Threatening)
  Sender: FDA-Public Use
  Company Number: 2011MA001679

PATIENT
  Age: 83 Year
  Sex: Female

DRUGS (15)
  1. DOCUSATE SODIUM [Concomitant]
  2. MACROGOL [Concomitant]
  3. CALCICHEW D12 [Concomitant]
  4. SALBUTAMOL [Concomitant]
  5. PREGABALIN [Concomitant]
  6. PRIADEL [Concomitant]
  7. PHENELZINE (PHENELZINE) [Suspect]
     Dosage: PO
     Route: 048
  8. FUROSEMIDE [Concomitant]
  9. LEVOTHYROXINE SODIUM [Concomitant]
  10. TRAMADOL HYDROCHLORIDE [Suspect]
     Dosage: PO
     Route: 048
     Dates: start: 20110119, end: 20110121
  11. CELLUVISC [Concomitant]
  12. PARACETAMOL [Concomitant]
  13. SENNA [Concomitant]
  14. ALENDRONIC ACID [Concomitant]
  15. IPRATROPIUM BROMIDE [Concomitant]

REACTIONS (3)
  - DEPRESSED LEVEL OF CONSCIOUSNESS [None]
  - HYPOXIA [None]
  - RESPIRATORY DEPRESSION [None]
